FAERS Safety Report 9383356 (Version 2)
Quarter: 2013Q3

REPORT INFORMATION
  Report Type: Spontaneous
  Country: CN (occurrence: CN)
  Receive Date: 20130704
  Receipt Date: 20130708
  Transmission Date: 20140515
  Serious: Yes (Other)
  Sender: FDA-Public Use
  Company Number: CN-ROCHE-1244983

PATIENT
  Age: 28 Year
  Sex: Male

DRUGS (2)
  1. PEGASYS [Suspect]
     Indication: HEPATITIS B
     Route: 058
     Dates: start: 20121017, end: 20130703
  2. ADEFOVIR DIPIVOXIL [Concomitant]
     Indication: HEPATITIS B

REACTIONS (1)
  - Sudden hearing loss [Unknown]
